FAERS Safety Report 5391570-8 (Version None)
Quarter: 2007Q3

REPORT INFORMATION
  Report Type: 
  Country: None (occurrence: None)
  Receive Date: 20070719
  Receipt Date: 20070710
  Transmission Date: 20080115
  Serious: Yes (Death)
  Sender: FDA-Public Use
  Company Number: AU-PFIZER INC-2007044500

PATIENT
  Sex: Male

DRUGS (2)
  1. SUTENT [Suspect]
     Route: 048
  2. SUTENT [Suspect]

REACTIONS (3)
  - NAUSEA [None]
  - SUDDEN DEATH [None]
  - VOMITING [None]
